FAERS Safety Report 20725316 (Version 2)
Quarter: 2022Q2

REPORT INFORMATION
  Report Type: Report from Study
  Country: US (occurrence: US)
  Receive Date: 20220419
  Receipt Date: 20220506
  Transmission Date: 20220720
  Serious: Yes (Other)
  Sender: FDA-Public Use
  Company Number: US-KYOWAKIRIN-2022BKK005332

PATIENT

DRUGS (2)
  1. CRYSVITA [Suspect]
     Active Substance: BUROSUMAB-TWZA
     Indication: Hereditary hypophosphataemic rickets
     Dosage: STRENGTH 10 MG/ML AND 30 MG/ML COMBINED TO ACHIEVE DOSE OF 70 MG, EVERY 28 DAYS
     Route: 058
     Dates: start: 20181124
  2. CRYSVITA [Suspect]
     Active Substance: BUROSUMAB-TWZA
     Indication: Hereditary hypophosphataemic rickets
     Dosage: STRENGTH 10 MG/ML AND 30 MG/ML COMBINED TO ACHIEVE DOSE OF 70 MG, EVERY 28 DAYS
     Route: 058
     Dates: start: 20181124

REACTIONS (9)
  - Hip arthroplasty [Unknown]
  - Musculoskeletal stiffness [Unknown]
  - Tooth fracture [Unknown]
  - Tinnitus [Unknown]
  - Myalgia [Unknown]
  - Arthralgia [Unknown]
  - Fatigue [Unknown]
  - Blood phosphorus decreased [Unknown]
  - Back pain [Unknown]

NARRATIVE: CASE EVENT DATE: 20210101
